FAERS Safety Report 4392035-2 (Version None)
Quarter: 2004Q3

REPORT INFORMATION
  Report Type: 
  Country: None (occurrence: None)
  Receive Date: 20040708
  Receipt Date: 20040622
  Transmission Date: 20050211
  Serious: Yes (Hospitalization)
  Sender: FDA-Public Use
  Company Number: PHRM2004FR02207

PATIENT
  Age: 1 Day
  Sex: Male
  Weight: 3 kg

DRUGS (6)
  1. SYNTOCINON [Suspect]
     Route: 064
     Dates: start: 20040507, end: 20040508
  2. OXACILLIN [Suspect]
     Indication: STAPHYLOCOCCAL INFECTION
     Route: 042
     Dates: start: 20040508, end: 20040509
  3. GENTALLINE [Suspect]
     Indication: STAPHYLOCOCCAL INFECTION
     Route: 042
     Dates: start: 20040508, end: 20040509
  4. VANCOMYCIN [Suspect]
     Indication: STAPHYLOCOCCAL INFECTION
     Route: 042
     Dates: start: 20040508, end: 20040509
  5. NAROPIN [Suspect]
     Route: 064
     Dates: start: 20040507, end: 20040508
  6. EPHEDRINE [Suspect]
     Route: 064
     Dates: start: 20040507, end: 20040508

REACTIONS (5)
  - LANGERHANS' CELL GRANULOMATOSIS [None]
  - LEUKOPENIA [None]
  - NEUTROPENIA [None]
  - SKIN LESION [None]
  - STAPHYLOCOCCAL INFECTION [None]
